FAERS Safety Report 8174206-2 (Version None)
Quarter: 2012Q1

REPORT INFORMATION
  Report Type: 
  Country: None (occurrence: None)
  Receive Date: 20120224
  Receipt Date: 20120220
  Transmission Date: 20120608
  Serious: Yes (Other)
  Sender: FDA-Public Use
  Company Number: 2012MA002353

PATIENT
  Age: 37 Year
  Sex: Male

DRUGS (3)
  1. METFORMIN HCL [Concomitant]
  2. RAMIPRIL [Suspect]
     Indication: PRODUCT USED FOR UNKNOWN INDICATION
     Dates: start: 20120127
  3. ORLISTAT [Concomitant]

REACTIONS (1)
  - HEADACHE [None]
